FAERS Safety Report 7600457-9 (Version None)
Quarter: 2011Q2

REPORT INFORMATION
  Report Type: 
  Country: None (occurrence: None)
  Receive Date: 20110629
  Receipt Date: 20110615
  Transmission Date: 20111010
  Serious: Yes (Other)
  Sender: FDA-Public Use
  Company Number: FK201101231

PATIENT
  Age: 62 Year
  Sex: Male
  Weight: 94.3482 kg

DRUGS (2)
  1. CISPLATIN [Suspect]
     Indication: MESOTHELIOMA MALIGNANT
     Dosage: 160 MG, 1 IN 21 D, INTRAVENOUS (NOT OTHERWISE SPECIFIED)
     Route: 042
     Dates: start: 20110615, end: 20110615
  2. MANNITOL (MANNITOL) (MANNITOL) [Concomitant]

REACTIONS (5)
  - HYPERHIDROSIS [None]
  - NAUSEA [None]
  - BLOOD PRESSURE INCREASED [None]
  - VOMITING [None]
  - INFUSION RELATED REACTION [None]
